FAERS Safety Report 7645563-8 (Version None)
Quarter: 2011Q3

REPORT INFORMATION
  Report Type: 
  Country: None (occurrence: None)
  Receive Date: 20110729
  Receipt Date: 20110719
  Transmission Date: 20111222
  Serious: Yes (Hospitalization, Other)
  Sender: FDA-Public Use
  Company Number: IT-NAPPMUNDI-GBR-2011-0008038

PATIENT
  Sex: Male

DRUGS (5)
  1. LIORESAL [Suspect]
     Indication: PARAPARESIS
     Dosage: 25 MG, DAILY
     Route: 048
     Dates: start: 20110307, end: 20110307
  2. PAROXETINE HYDROCHLORIDE [Concomitant]
     Dosage: 20 MG, DAILY
     Route: 048
  3. ACETAMINOPHEN W/ CODEINE PHOSPHATE [Suspect]
     Indication: PAIN
     Dosage: 500 MG, DAILY
     Route: 048
     Dates: start: 20110307, end: 20110307
  4. OXYCONTIN [Suspect]
     Indication: PAIN
     Dosage: 80 MG, DAILY
     Route: 048
     Dates: start: 20110101, end: 20110307
  5. LORAZEPAM [Concomitant]
     Dosage: 1 MG, DAILY

REACTIONS (4)
  - DRUG ABUSE [None]
  - ARRHYTHMIA [None]
  - SOPOR [None]
  - MALAISE [None]
